FAERS Safety Report 16712441 (Version 1)
Quarter: 2019Q3

REPORT INFORMATION
  Report Type: Spontaneous
  Country: US (occurrence: US)
  Receive Date: 20190816
  Receipt Date: 20190816
  Transmission Date: 20191004
  Serious: No
  Sender: FDA-Public Use
  Company Number: PHEH2019US033486

PATIENT
  Sex: Female

DRUGS (1)
  1. DORZOLAMIDE HYDROCHLORIDE. [Suspect]
     Active Substance: DORZOLAMIDE HYDROCHLORIDE
     Indication: GLAUCOMA
     Dosage: UNK UNK, BID
     Route: 065

REACTIONS (2)
  - Sneezing [Unknown]
  - Eye irritation [Unknown]
